FAERS Safety Report 7261929-2 (Version None)
Quarter: 2011Q1

REPORT INFORMATION
  Report Type: 
  Country: None (occurrence: None)
  Receive Date: 20110130
  Receipt Date: 20101201
  Transmission Date: 20110831
  Serious: No
  Sender: FDA-Public Use
  Company Number: US-ABBOTT-10P-163-0688942-00

PATIENT
  Age: 36 Year
  Sex: Female

DRUGS (12)
  1. SEASONALE [Concomitant]
     Indication: MENSTRUAL DISORDER
     Dosage: 0.15/0.03 MG 1 IN 1 D
  2. HUMIRA [Suspect]
     Indication: CROHN'S DISEASE
     Dates: start: 20101112
  3. ZOCOR [Concomitant]
     Indication: BLOOD CHOLESTEROL INCREASED
  4. AMARYL [Concomitant]
     Indication: DIABETES MELLITUS
  5. ELAVIL [Concomitant]
     Indication: NEURALGIA
  6. METFORMIN HCL [Concomitant]
     Indication: DIABETES MELLITUS
  7. METOPROLOL [Concomitant]
     Indication: HYPERTENSION
  8. PENTASA [Concomitant]
     Indication: CROHN'S DISEASE
  9. ACIPHEX [Concomitant]
     Indication: GASTROOESOPHAGEAL REFLUX DISEASE
  10. ELAVIL [Concomitant]
     Indication: INTESTINAL OPERATION
  11. ENTOCORT EC [Concomitant]
     Indication: CROHN'S DISEASE
  12. PAXIL [Concomitant]
     Indication: DEPRESSION

REACTIONS (1)
  - PHARYNGEAL OEDEMA [None]
